FAERS Safety Report 9114151 (Version 1)
Quarter: 2013Q1

REPORT INFORMATION
  Report Type: Spontaneous
  Country: US (occurrence: US)
  Receive Date: 20130128
  Receipt Date: 20130128
  Transmission Date: 20140127
  Serious: Yes (Other)
  Sender: FDA-Public Use
  Company Number: US-BAYER-2013-007213

PATIENT
  Sex: Female

DRUGS (1)
  1. MIRENA [Suspect]
     Dosage: 20 MCG/24HR, CONT
     Route: 015
     Dates: start: 20090317, end: 20110519

REACTIONS (11)
  - Device dislocation [None]
  - Genital haemorrhage [None]
  - Procedural pain [None]
  - Pelvic pain [None]
  - Dyspareunia [None]
  - Ovarian cyst [None]
  - Polycystic ovaries [None]
  - Infertility female [None]
  - Scar [None]
  - Device difficult to use [None]
  - Device difficult to use [None]
